FAERS Safety Report 7386730-0 (Version None)
Quarter: 2011Q1

REPORT INFORMATION
  Report Type: 
  Country: None (occurrence: None)
  Receive Date: 20110331
  Receipt Date: 20110327
  Transmission Date: 20110831
  Serious: No
  Sender: FDA-Public Use
  Company Number: US-TEVA-273946USA

PATIENT
  Sex: Female
  Weight: 59.02 kg

DRUGS (3)
  1. ALEVE [Concomitant]
     Indication: PAIN
  2. CYCLOSPORINE [Concomitant]
     Indication: LIVER TRANSPLANT
  3. PLAN B ONE-STEP [Suspect]
     Indication: POST COITAL CONTRACEPTION
     Route: 048
     Dates: start: 20110321, end: 20110321

REACTIONS (2)
  - MENSTRUATION IRREGULAR [None]
  - PELVIC PAIN [None]
